FAERS Safety Report 7409859-7 (Version None)
Quarter: 2011Q2

REPORT INFORMATION
  Report Type: 
  Country: None (occurrence: None)
  Receive Date: 20110412
  Receipt Date: 20110406
  Transmission Date: 20111010
  Serious: Yes (Life-Threatening)
  Sender: FDA-Public Use
  Company Number: JP-ABBOTT-11P-087-0705994-00

PATIENT
  Age: 44 Year
  Sex: Female

DRUGS (1)
  1. LEUPLIN FOR INJECTION 1.88 MG [Suspect]
     Indication: UTERINE LEIOMYOMA
     Route: 058
     Dates: start: 20110117, end: 20110117

REACTIONS (1)
  - VENOUS THROMBOSIS [None]
